FAERS Safety Report 4386464-0 (Version None)
Quarter: 2004Q2

REPORT INFORMATION
  Report Type: 
  Country: None (occurrence: None)
  Receive Date: 20040629
  Receipt Date: 20040621
  Transmission Date: 20050107
  Serious: Yes (Hospitalization)
  Sender: FDA-Public Use
  Company Number: GB-ROCHE-371573

PATIENT
  Age: 70 Year
  Sex: Male

DRUGS (6)
  1. XENICAL [Suspect]
     Indication: OBESITY
     Route: 065
     Dates: start: 20040115, end: 20040217
  2. SALMETEROL [Concomitant]
     Dosage: DAILY DOSE REPORTED AS 2MCGX2
  3. BECLOMETHASONE DIPROPIONATE [Concomitant]
     Route: 045
  4. ALBUTEROL SULFATE [Concomitant]
  5. PRAZOSIN HCL [Concomitant]
  6. FLUTICASONE PROPIONATE [Concomitant]

REACTIONS (3)
  - ATRIAL FIBRILLATION [None]
  - LIVER ABSCESS [None]
  - PYREXIA [None]
